FAERS Safety Report 23809568 (Version 1)
Quarter: 2024Q2

REPORT INFORMATION
  Report Type: Spontaneous
  Country: NL (occurrence: NL)
  Receive Date: 20240502
  Receipt Date: 20240502
  Transmission Date: 20240716
  Serious: Yes (Death)
  Sender: FDA-Public Use
  Company Number: NL-TEVA-VS-3191678

PATIENT
  Sex: Female

DRUGS (2)
  1. FLUDARABINE [Suspect]
     Active Substance: FLUDARABINE PHOSPHATE
     Indication: Juvenile chronic myelomonocytic leukaemia
     Dosage: RECEIVED TWO COURSES; FLAG REGIMEN
     Route: 065
  2. CYTARABINE [Suspect]
     Active Substance: CYTARABINE
     Indication: Juvenile chronic myelomonocytic leukaemia
     Dosage: RECEIVED TWO COURSES ; FLAG REGIMEN
     Route: 065

REACTIONS (1)
  - Drug ineffective [Fatal]
